FAERS Safety Report 11802008 (Version 1)
Quarter: 2015Q4

REPORT INFORMATION
  Report Type: Spontaneous
  Country: IT (occurrence: IT)
  Receive Date: 20151204
  Receipt Date: 20151204
  Transmission Date: 20160305
  Serious: Yes (Death)
  Sender: FDA-Public Use
  Company Number: IT-MYLANLABS-2015M1009947

PATIENT

DRUGS (1)
  1. LEVOFLOXACINA MYLAN GENERICS ITALIA [Suspect]
     Active Substance: LEVOFLOXACIN
     Indication: PHARYNGITIS
     Dosage: 500 MG, QD
     Route: 048
     Dates: start: 20150320, end: 20150325

REACTIONS (1)
  - Varicella [Fatal]

NARRATIVE: CASE EVENT DATE: 20150321
